FAERS Safety Report 19761608 (Version 1)
Quarter: 2021Q3

REPORT INFORMATION
  Report Type: Spontaneous
  Country: US (occurrence: US)
  Receive Date: 20210828
  Receipt Date: 20210828
  Transmission Date: 20211014
  Serious: Yes (Hospitalization)
  Sender: FDA-Public Use
  Company Number: None

PATIENT
  Age: 80 Year
  Sex: Female
  Weight: 58.5 kg

DRUGS (3)
  1. METHIMAZOLE. [Concomitant]
     Active Substance: METHIMAZOLE
  2. MULTI VITAMIN [Concomitant]
     Active Substance: VITAMINS
  3. MYRBETRIQ [Suspect]
     Active Substance: MIRABEGRON
     Indication: URINARY INCONTINENCE
     Dosage: ?          QUANTITY:30 TABLET(S);?
     Route: 048
     Dates: start: 20210713, end: 20210721

REACTIONS (6)
  - Tachycardia [None]
  - Vision blurred [None]
  - Constipation [None]
  - Asthenia [None]
  - Muscular weakness [None]
  - Muscle strength abnormal [None]

NARRATIVE: CASE EVENT DATE: 20210723
